FAERS Safety Report 9837959 (Version 2)
Quarter: 2014Q2

REPORT INFORMATION
  Report Type: Spontaneous
  Country: US (occurrence: None)
  Receive Date: 20131205
  Receipt Date: 20140416
  Transmission Date: 20141212
  Serious: No
  Sender: FDA-Public Use
  Company Number: 163-POMAL-13103528

PATIENT
  Age: 81 Year
  Sex: Male
  Weight: 74.84 kg

DRUGS (21)
  1. POMALYST [Suspect]
     Indication: PLASMA CELL MYELOMA
     Dosage: 2 MG, 21 IN 21 D, PO
     Route: 048
     Dates: start: 20130624
  2. ASPIRIN (ACETYLSALICYLIC ACID) [Concomitant]
  3. VITAMIN B-12 (CYANOCOBALAMIN) [Concomitant]
  4. VITAMIN D (ERGOCALIFEROL) [Concomitant]
  5. VITAMIN B 1 (THIAMINE HYDROCHLORIDE) [Concomitant]
  6. NITROSTAT (GLYCERYL TRINITRATE) [Concomitant]
  7. ISOSORBIDE DN (ISOSORBIDE DINITRATE) [Concomitant]
  8. ALBUTEROL (SALBUTAMOL) [Concomitant]
  9. OXYCONTIN (OXYCODONE HYDROCHLORIDE) [Concomitant]
  10. ZOCOR (SIMVASTATIN) [Concomitant]
  11. ACYCLOVIER (ACICLOVIR) [Concomitant]
  12. DEXAMETHASONE [Concomitant]
  13. PERCOCET (OXYCOCET) [Concomitant]
  14. IMDUR (ISOSORBIDE MONONITRATE) [Concomitant]
  15. LOPRESSOR (METOPROLOL TARTRATE) [Concomitant]
  16. LISINOPRIL [Concomitant]
  17. CLOTRIMAZOLE [Concomitant]
  18. FLUCONAZOLE [Concomitant]
  19. NYSTATIN [Concomitant]
  20. DIAZEPAM [Concomitant]
  21. VITAMIN D3 (COLECALCIFEROL) [Concomitant]

REACTIONS (10)
  - Hypoaesthesia [None]
  - Paraesthesia [None]
  - Fatigue [None]
  - Dizziness [None]
  - Aggression [None]
  - Candida infection [None]
  - Dyspnoea [None]
  - Neuropathy peripheral [None]
  - Back pain [None]
  - Fatigue [None]
